FAERS Safety Report 13965765 (Version 6)
Quarter: 2019Q4

REPORT INFORMATION
  Report Type: Report from Study
  Country: US (occurrence: US)
  Receive Date: 20170913
  Receipt Date: 20191004
  Transmission Date: 20200122
  Serious: Yes (Hospitalization)
  Sender: FDA-Public Use
  Company Number: US-ARIAD PHARMACEUTICALS, INC-2017US008863

PATIENT
  Sex: Male
  Weight: 102 kg

DRUGS (1)
  1. PONATINIB [Suspect]
     Active Substance: PONATINIB
     Indication: MYELOID LEUKAEMIA
     Dosage: 15 MILLIGRAM, QD
     Route: 048
     Dates: start: 201609

REACTIONS (10)
  - Device related infection [Unknown]
  - Furuncle [Unknown]
  - Pain in extremity [Unknown]
  - Prostatic disorder [Unknown]
  - Constipation [Unknown]
  - Urinary bladder haemorrhage [Unknown]
  - Haematuria [Unknown]
  - Blood pressure increased [Unknown]
  - Swollen tongue [Unknown]
  - Tooth extraction [Unknown]
